FAERS Safety Report 7816912-2 (Version None)
Quarter: 2011Q4

REPORT INFORMATION
  Report Type: 
  Country: None (occurrence: None)
  Receive Date: 20111017
  Receipt Date: 20111003
  Transmission Date: 20120403
  Serious: Yes (Other)
  Sender: FDA-Public Use
  Company Number: US-BAYER-2010-002158

PATIENT
  Age: 25 Year
  Sex: Female
  Weight: 86.168 kg

DRUGS (2)
  1. ALBUTEROL [Concomitant]
     Dosage: UNK UNK, PRN
  2. YAZ [Suspect]
     Indication: PREMENSTRUAL SYNDROME
     Dosage: UNK
     Dates: start: 20070101, end: 20090101

REACTIONS (4)
  - CHOLECYSTITIS CHRONIC [None]
  - GALLBLADDER DISORDER [None]
  - BILIARY DYSKINESIA [None]
  - GALLBLADDER INJURY [None]
